FAERS Safety Report 18822261 (Version 1)
Quarter: 2021Q1

REPORT INFORMATION
  Report Type: Spontaneous
  Country: JP (occurrence: JP)
  Receive Date: 20210202
  Receipt Date: 20210202
  Transmission Date: 20210419
  Serious: Yes (Death, Other)
  Sender: FDA-Public Use
  Company Number: NVSJ2020JP013818

PATIENT
  Age: 98 Year
  Sex: Male

DRUGS (2)
  1. GEBEN [Concomitant]
     Active Substance: SILVER SULFADIAZINE
     Indication: PRODUCT USED FOR UNKNOWN INDICATION
     Dosage: UNK
     Route: 065
     Dates: start: 2020
  2. NEORAL [Suspect]
     Active Substance: CYCLOSPORINE
     Indication: PUSTULAR PSORIASIS
     Dosage: 100 MG
     Route: 048
     Dates: start: 20200611, end: 20200625

REACTIONS (5)
  - Cardiac failure [Fatal]
  - Renal impairment [Unknown]
  - Blood pressure increased [Unknown]
  - Pustular psoriasis [Fatal]
  - Disease progression [Fatal]

NARRATIVE: CASE EVENT DATE: 20200617
